FAERS Safety Report 14274068 (Version 1)
Quarter: 2017Q4

REPORT INFORMATION
  Report Type: Spontaneous
  Country: CH (occurrence: CH)
  Receive Date: 20171212
  Receipt Date: 20171212
  Transmission Date: 20180321
  Serious: Yes (Other)
  Sender: FDA-Public Use
  Company Number: CH-JNJFOC-20171214348

PATIENT
  Sex: Female

DRUGS (5)
  1. CONDROSULF [Suspect]
     Active Substance: SODIUM CHONDROITIN SULFATE
     Indication: OSTEOARTHRITIS
     Route: 048
     Dates: start: 2015, end: 20160527
  2. MIRENA [Concomitant]
     Active Substance: LEVONORGESTREL
     Indication: CONTRACEPTION
     Route: 015
     Dates: start: 2011, end: 20160428
  3. CERAZETTE [Concomitant]
     Active Substance: DESOGESTREL
     Indication: CONTRACEPTION
     Route: 048
  4. ZALDIAR [Suspect]
     Active Substance: ACETAMINOPHEN\TRAMADOL HYDROCHLORIDE
     Indication: ARTHRALGIA
     Route: 048
     Dates: start: 2015, end: 20160527
  5. NOVALGIN [Suspect]
     Active Substance: METAMIZOLE SODIUM
     Indication: ARTHRALGIA
     Route: 048
     Dates: start: 2015, end: 20160527

REACTIONS (1)
  - Exposure during pregnancy [Recovered/Resolved]
